FAERS Safety Report 4960477-X (Version None)
Quarter: 2006Q2

REPORT INFORMATION
  Report Type: 
  Country: None (occurrence: None)
  Receive Date: 20060403
  Receipt Date: 20060321
  Transmission Date: 20061013
  Serious: Yes (Other)
  Sender: FDA-Public Use
  Company Number: PHBS2006SE04197

PATIENT
  Age: 66 Year
  Sex: Female

DRUGS (6)
  1. ZOMETA [Suspect]
     Indication: METASTASES TO BONE
     Dosage: 4 MG
     Route: 042
     Dates: start: 20060112, end: 20060214
  2. LANSOPRAZOLE [Concomitant]
     Route: 065
  3. IPREN [Concomitant]
     Dosage: WHEN REQUIRED
     Route: 065
  4. FRAGMIN [Concomitant]
     Route: 065
  5. SPIRONOLACTONE [Concomitant]
     Route: 065
  6. FURIX [Concomitant]
     Route: 065

REACTIONS (3)
  - INFECTION [None]
  - ORAL PAIN [None]
  - OSTEONECROSIS [None]
